FAERS Safety Report 13689204 (Version 1)
Quarter: 2017Q2

REPORT INFORMATION
  Report Type: Spontaneous
  Country: US (occurrence: US)
  Receive Date: 20170624
  Receipt Date: 20170624
  Transmission Date: 20170830
  Serious: Yes (Life-Threatening, Disabling)
  Sender: FDA-Public Use
  Company Number: None

PATIENT
  Age: 26 Year
  Sex: Female
  Weight: 56.25 kg

DRUGS (1)
  1. LORAZEPAM. [Suspect]
     Active Substance: LORAZEPAM
     Dosage: AT BEDTIME ORAL
     Route: 048

REACTIONS (8)
  - Anger [None]
  - Impaired work ability [None]
  - Cognitive disorder [None]
  - Muscle spasms [None]
  - Hepatic enzyme increased [None]
  - Visual impairment [None]
  - Withdrawal syndrome [None]
  - Anxiety [None]
